FAERS Safety Report 11965765 (Version 1)
Quarter: 2016Q1

REPORT INFORMATION
  Report Type: Spontaneous
  Country: FR (occurrence: FR)
  Receive Date: 20160127
  Receipt Date: 20160127
  Transmission Date: 20160526
  Serious: Yes (Life-Threatening, Hospitalization, Other)
  Sender: FDA-Public Use
  Company Number: FR-PFIZER INC-2016034617

PATIENT
  Age: 3 Year
  Sex: Male
  Weight: 16 kg

DRUGS (8)
  1. FLUIMUCIL [Concomitant]
     Active Substance: ACETYLCYSTEINE
     Indication: COUGH
     Dosage: UNK
     Dates: start: 20151215
  2. TIORFAN [Concomitant]
     Active Substance: RACECADOTRIL
     Indication: COUGH
     Dosage: UNK
     Dates: start: 20151215
  3. ADVILMED ENFANTS ET NOURRISSONS [Suspect]
     Active Substance: IBUPROFEN
     Indication: COUGH
     Dosage: 1 DF, 4X/DAY
     Route: 048
     Dates: start: 20151215, end: 20151217
  4. ADVILMED ENFANTS ET NOURRISSONS [Suspect]
     Active Substance: IBUPROFEN
     Indication: PYREXIA
  5. TIORFAN [Concomitant]
     Active Substance: RACECADOTRIL
     Indication: PYREXIA
  6. FLUIMUCIL [Concomitant]
     Active Substance: ACETYLCYSTEINE
     Indication: PYREXIA
  7. DOLIPRANE [Concomitant]
     Active Substance: ACETAMINOPHEN
     Indication: COUGH
     Dosage: UNK
     Dates: start: 20151215
  8. DOLIPRANE [Concomitant]
     Active Substance: ACETAMINOPHEN
     Indication: PYREXIA

REACTIONS (15)
  - Pyrexia [Recovered/Resolved]
  - Pneumonia [Recovered/Resolved]
  - Condition aggravated [Recovered/Resolved]
  - Rash [Recovered/Resolved]
  - Anaemia [Recovered/Resolved]
  - Hyponatraemia [Unknown]
  - Tonsillitis [Unknown]
  - Septic shock [Recovered/Resolved]
  - Gastrointestinal haemorrhage [Recovered/Resolved]
  - Pharyngitis streptococcal [Recovered/Resolved]
  - Renal failure [Recovered/Resolved]
  - Thrombocytopenia [Unknown]
  - Cough [Recovered/Resolved]
  - Pleural effusion [Recovered/Resolved]
  - Nephrotic syndrome [Unknown]

NARRATIVE: CASE EVENT DATE: 201512
